FAERS Safety Report 10082354 (Version 1)
Quarter: 2014Q2

REPORT INFORMATION
  Report Type: Spontaneous
  Country: US (occurrence: None)
  Receive Date: 20140415
  Receipt Date: 20140415
  Transmission Date: 20141212
  Serious: Yes (Other)
  Sender: FDA-Public Use
  Company Number: None

PATIENT
  Age: 65 Year
  Sex: Male
  Weight: 108.86 kg

DRUGS (1)
  1. LAMOTRIGINE 150 MG TAROP [Suspect]
     Indication: DEPRESSION
     Dosage: ONE PILL
     Route: 048
     Dates: start: 20130905, end: 20130913

REACTIONS (5)
  - Product substitution issue [None]
  - Impaired work ability [None]
  - Disturbance in attention [None]
  - Memory impairment [None]
  - Anxiety [None]
